APPROVED DRUG PRODUCT: LEVONORGESTREL
Active Ingredient: LEVONORGESTREL
Strength: 1.5MG
Dosage Form/Route: TABLET;ORAL
Application: A200670 | Product #001
Applicant: FOUNDATION CONSUMER HEALTHCARE LLC
Approved: Jul 12, 2012 | RLD: No | RS: No | Type: DISCN